FAERS Safety Report 18124456 (Version 6)
Quarter: 2020Q4

REPORT INFORMATION
  Report Type: Spontaneous
  Country: US (occurrence: US)
  Receive Date: 20200807
  Receipt Date: 20201029
  Transmission Date: 20210113
  Serious: Yes (Other)
  Sender: FDA-Public Use
  Company Number: US-PFIZER INC-2020253935

PATIENT
  Age: 78 Year
  Sex: Male
  Weight: 93.44 kg

DRUGS (2)
  1. MEKTOVI [Suspect]
     Active Substance: BINIMETINIB
     Indication: METASTATIC SALIVARY GLAND CANCER
     Dosage: 45 MG, 2X/DAY (TAKE 3 TABLETS BY MOUTH EVERY 12 HRS)
     Route: 048
     Dates: start: 20200717, end: 202009
  2. MEKTOVI [Suspect]
     Active Substance: BINIMETINIB
     Dosage: UNK

REACTIONS (24)
  - Ocular discomfort [Unknown]
  - Product use in unapproved indication [Unknown]
  - Platelet count decreased [Recovering/Resolving]
  - Asthenia [Unknown]
  - Peripheral swelling [Unknown]
  - Oedema [Not Recovered/Not Resolved]
  - Swelling face [Not Recovered/Not Resolved]
  - Drug eruption [Not Recovered/Not Resolved]
  - Off label use [Unknown]
  - Blood creatine phosphokinase increased [Recovering/Resolving]
  - Dermatitis contact [Not Recovered/Not Resolved]
  - Serous retinal detachment [Unknown]
  - Vision blurred [Unknown]
  - Peripheral swelling [Not Recovered/Not Resolved]
  - Protein total abnormal [Recovering/Resolving]
  - Nausea [Unknown]
  - Cardiac failure congestive [Unknown]
  - Fatigue [Not Recovered/Not Resolved]
  - Condition aggravated [Not Recovered/Not Resolved]
  - Muscular weakness [Unknown]
  - Rash [Not Recovered/Not Resolved]
  - Hyperaesthesia [Unknown]
  - Vitreous degeneration [Unknown]
  - Maculopathy [Unknown]

NARRATIVE: CASE EVENT DATE: 2020
